FAERS Safety Report 4440444-5 (Version None)
Quarter: 2004Q3

REPORT INFORMATION
  Report Type: 
  Country: None (occurrence: None)
  Receive Date: 20040728
  Receipt Date: 20040308
  Transmission Date: 20050211
  Serious: No
  Sender: FDA-Public Use
  Company Number: USA040361376

PATIENT
  Age: 30 Year
  Sex: Female

DRUGS (4)
  1. STRATTERA [Suspect]
  2. TOPOMAX (TOPIRAMATE) [Concomitant]
  3. DIURETICS [Concomitant]
  4. CONCERTA [Concomitant]

REACTIONS (2)
  - DIZZINESS [None]
  - FEELING ABNORMAL [None]
